FAERS Safety Report 16971277 (Version 1)
Quarter: 2019Q4

REPORT INFORMATION
  Report Type: Spontaneous
  Country: US (occurrence: US)
  Receive Date: 20191029
  Receipt Date: 20191029
  Transmission Date: 20200122
  Serious: No
  Sender: FDA-Public Use
  Company Number: US-GALDERMA-US19016601

PATIENT
  Age: 70 Year
  Sex: Female

DRUGS (5)
  1. CETAPHIL REDNESS RELIEVING DAILY FACIAL MOISTURIZER WITH SUNCREEN SPF 20 [Suspect]
     Active Substance: TITANIUM DIOXIDE\ZINC OXIDE
     Indication: ROSACEA
     Route: 065
     Dates: start: 20190131, end: 20190324
  2. CETAPHIL REDNESS RELIEVING DAILY FACIAL MOISTURIZER WITH SUNCREEN SPF 20 [Suspect]
     Active Substance: TITANIUM DIOXIDE\ZINC OXIDE
     Indication: ROSACEA
     Route: 065
     Dates: start: 20190131, end: 20190324
  3. CETAPHIL REDNESS RELIEVING DAILY FACIAL MOISTURIZER WITH SUNCREEN SPF 20 [Suspect]
     Active Substance: TITANIUM DIOXIDE\ZINC OXIDE
     Indication: ROSACEA
     Route: 065
     Dates: start: 20190131, end: 20190324
  4. METROCREAM [Suspect]
     Active Substance: METRONIDAZOLE
     Indication: ROSACEA
     Dosage: 0.75%
     Route: 061
     Dates: start: 20190131, end: 20190324
  5. CETAPHIL FOAMING FACE WASH [Suspect]
     Active Substance: COSMETICS
     Indication: ROSACEA
     Route: 061
     Dates: start: 20190131, end: 20190324

REACTIONS (2)
  - Lacrimation increased [Recovering/Resolving]
  - Eye irritation [Recovering/Resolving]

NARRATIVE: CASE EVENT DATE: 201902
